FAERS Safety Report 9162528 (Version 1)
Quarter: 2013Q1

REPORT INFORMATION
  Report Type: Spontaneous
  Country: IT (occurrence: IT)
  Receive Date: 20130314
  Receipt Date: 20130314
  Transmission Date: 20140127
  Serious: Yes (Life-Threatening)
  Sender: FDA-Public Use
  Company Number: IT-PFIZER INC-2013084204

PATIENT
  Age: 70 Year
  Sex: Male

DRUGS (3)
  1. IRINOTECAN HCL [Suspect]
     Indication: ADENOCARCINOMA OF COLON
     Dosage: 360 MG, CYCLIC
     Route: 042
     Dates: start: 20120528
  2. BEVACIZUMAB [Suspect]
     Indication: ADENOCARCINOMA OF COLON
     Dosage: 425 MG, CYCLIC
     Route: 042
     Dates: start: 20120528
  3. FLUOROURACIL [Suspect]
     Indication: ADENOCARCINOMA OF COLON
     Dosage: 5600 MG, CYCLIC
     Route: 042
     Dates: start: 20120528

REACTIONS (1)
  - Atrial fibrillation [Recovered/Resolved]
